FAERS Safety Report 5811346-4 (Version None)
Quarter: 2008Q3

REPORT INFORMATION
  Report Type: 
  Country: None (occurrence: None)
  Receive Date: 20080710
  Receipt Date: 20080627
  Transmission Date: 20090109
  Serious: Yes (Hospitalization)
  Sender: FDA-Public Use
  Company Number: 2008001535

PATIENT
  Age: 80 Year
  Sex: Male

DRUGS (13)
  1. ERLOTINIB / PLACEBO (ERLOTINIB HCL) (TABLET (ERLOTININIB HCL) [Suspect]
     Indication: NON-SMALL CELL LUNG CANCER
     Dosage: ORAL
     Route: 048
     Dates: start: 20070923, end: 20080615
  2. FERROUS SULFATE TAB [Concomitant]
  3. ASPIRIN [Concomitant]
  4. PERINDOPRIL ERBUMINE [Concomitant]
  5. ACTORVASTATIN (ATORVASTATIN) [Concomitant]
  6. CO DANTHRAMER [Concomitant]
  7. OMEPRAZOLE [Concomitant]
  8. FUROSEMIDE [Concomitant]
  9. ZOPICLONE (ZOPICLONE) [Concomitant]
  10. SYMBICORT (SYMBICORT) [Concomitant]
  11. BRICANYL [Concomitant]
  12. GTN (GLYCERYL TRINITRATE) [Concomitant]
  13. TIOTROPIUM [Concomitant]

REACTIONS (10)
  - ABDOMINAL PAIN [None]
  - ARRHYTHMIA SUPRAVENTRICULAR [None]
  - ATRIAL FIBRILLATION [None]
  - BLOOD ALBUMIN DECREASED [None]
  - CHILLS [None]
  - DIARRHOEA [None]
  - FALL [None]
  - HYPOTENSION [None]
  - SOMNOLENCE [None]
  - VOMITING [None]
